FAERS Safety Report 5441355-9 (Version None)
Quarter: 2007Q3

REPORT INFORMATION
  Report Type: 
  Country: None (occurrence: None)
  Receive Date: 20070903
  Receipt Date: 20070828
  Transmission Date: 20080115
  Serious: Yes (Other)
  Sender: FDA-Public Use
  Company Number: PHNU2007DE02940

PATIENT
  Age: 70 Year
  Sex: Female

DRUGS (2)
  1. AREDIA [Suspect]
     Indication: METASTASES TO BONE
     Route: 065
     Dates: start: 20030101, end: 20050101
  2. ZOMETA [Suspect]
     Indication: METASTASES TO BONE
     Dosage: 4 MG, QMO
     Route: 065
     Dates: start: 20050101, end: 20070601

REACTIONS (4)
  - OSTEONECROSIS [None]
  - TOOTH EROSION [None]
  - TOOTH EXTRACTION [None]
  - TOOTH LOSS [None]
